FAERS Safety Report 4409603-1 (Version None)
Quarter: 2004Q3

REPORT INFORMATION
  Report Type: 
  Country: None (occurrence: None)
  Receive Date: 20040723
  Receipt Date: 20030609
  Transmission Date: 20050211
  Serious: Yes (Hospitalization, Other)
  Sender: FDA-Public Use
  Company Number: US-JNJFOC-20040600812

PATIENT
  Age: 48 Year
  Sex: Male

DRUGS (1)
  1. MOTRIN IB [Suspect]
     Indication: PYREXIA
     Dosage: 1200-1600 MG, PO
     Route: 048
     Dates: start: 20010308, end: 20010310

REACTIONS (6)
  - ABSCESS INTESTINAL [None]
  - ALCOHOL USE [None]
  - EATING DISORDER [None]
  - GASTRITIS [None]
  - GASTROOESOPHAGEAL REFLUX DISEASE [None]
  - LARGE INTESTINE PERFORATION [None]
